FAERS Safety Report 6356762-X (Version None)
Quarter: 2009Q3

REPORT INFORMATION
  Report Type: 
  Country: None (occurrence: None)
  Receive Date: 20090914
  Receipt Date: 20090914
  Transmission Date: 20100115
  Serious: Yes (Hospitalization)
  Sender: FDA-Public Use
  Company Number: None

PATIENT
  Sex: Female
  Weight: 72.5755 kg

DRUGS (2)
  1. PEGASYS [Suspect]
     Indication: HEPATITIS C
     Dosage: # 4 SHOTS QWEEK SUBQ 057
     Route: 058
  2. RIBASPHERE [Suspect]
     Dosage: 140 2 QAM 3 QPM PO 047
     Route: 048

REACTIONS (2)
  - BLISTER [None]
  - THERMAL BURN [None]
